FAERS Safety Report 20017971 (Version 1)
Quarter: 2021Q4

REPORT INFORMATION
  Report Type: Spontaneous
  Country: US (occurrence: None)
  Receive Date: 20211101
  Receipt Date: 20211101
  Transmission Date: 20220303
  Serious: Yes (Hospitalization, Other)
  Sender: FDA-Public Use
  Company Number: US-Hikma Pharmaceuticals USA Inc.-US-H14001-21-04538

PATIENT
  Age: 18 Year
  Sex: Female
  Weight: 82.6 kg

DRUGS (11)
  1. CYTARABINE [Suspect]
     Active Substance: CYTARABINE
     Indication: Acute lymphocytic leukaemia
     Dosage: DAY 1-4, DAY 8-11
     Route: 042
     Dates: start: 20210903, end: 20211001
  2. CYTARABINE [Suspect]
     Active Substance: CYTARABINE
     Dosage: DAY 1-4, DAY 8-11
     Route: 042
     Dates: start: 20211008
  3. METHOTREXATE [Suspect]
     Active Substance: METHOTREXATE
     Indication: Acute lymphocytic leukaemia
     Dosage: DAY 1,8, 15, 22
     Route: 037
     Dates: start: 20210903
  4. MERCAPTOPURINE [Suspect]
     Active Substance: MERCAPTOPURINE
     Indication: Acute lymphocytic leukaemia
     Dosage: DAY 1-14
     Route: 048
     Dates: start: 20210903, end: 20211001
  5. MERCAPTOPURINE [Suspect]
     Active Substance: MERCAPTOPURINE
     Dosage: DAY 1-14
     Route: 048
     Dates: start: 20211008
  6. RUXOLITINIB [Suspect]
     Active Substance: RUXOLITINIB
     Indication: Acute lymphocytic leukaemia
     Dosage: DAY 1-14
     Route: 048
     Dates: start: 20210903, end: 20211001
  7. RUXOLITINIB [Suspect]
     Active Substance: RUXOLITINIB
     Dosage: DAY 1-14
     Route: 048
     Dates: start: 20211008
  8. CYCLOPHOSPHAMIDE [Suspect]
     Active Substance: CYCLOPHOSPHAMIDE
     Indication: Acute lymphocytic leukaemia
     Dosage: DAY 1
     Route: 042
     Dates: start: 20210903, end: 20211001
  9. CYCLOPHOSPHAMIDE [Suspect]
     Active Substance: CYCLOPHOSPHAMIDE
     Dosage: DAY 1
     Route: 042
     Dates: start: 20211008
  10. VINCRISTINE [Suspect]
     Active Substance: VINCRISTINE
     Indication: Acute lymphocytic leukaemia
     Dosage: DAY 15, 22
     Route: 042
     Dates: start: 20210917
  11. PEGASPARGASE [Suspect]
     Active Substance: PEGASPARGASE
     Indication: Acute lymphocytic leukaemia
     Dosage: DAY 15
     Route: 042
     Dates: start: 20210917

REACTIONS (8)
  - Febrile neutropenia [Recovered/Resolved]
  - White blood cell count decreased [Unknown]
  - Platelet count decreased [Unknown]
  - Neutrophil count decreased [Recovered/Resolved]
  - Malaise [Unknown]
  - Pyrexia [Recovered/Resolved]
  - Non-cardiac chest pain [Unknown]
  - Mucosal inflammation [Recovered/Resolved]

NARRATIVE: CASE EVENT DATE: 20210924
